FAERS Safety Report 9790627 (Version 1)
Quarter: 2013Q4

REPORT INFORMATION
  Report Type: Spontaneous
  Country: US (occurrence: US)
  Receive Date: 20131231
  Receipt Date: 20131231
  Transmission Date: 20140711
  Serious: Yes (Hospitalization)
  Sender: FDA-Public Use
  Company Number: US-GLAXOSMITHKLINE-A1054809A

PATIENT
  Age: 31 Year
  Sex: Female

DRUGS (13)
  1. ADVAIR [Suspect]
     Indication: ASTHMA
     Dosage: 1PUFF TWICE PER DAY
     Route: 055
     Dates: start: 2011
  2. VENTOLIN [Suspect]
     Indication: ASTHMA
     Dosage: 2PUFF UNKNOWN
     Route: 055
     Dates: start: 2011
  3. SINGULAIR [Concomitant]
  4. ZYRTEC [Concomitant]
  5. VITAMIN D [Concomitant]
  6. PREDNISONE [Concomitant]
  7. CALCIUM [Concomitant]
  8. VITAMIN C [Concomitant]
  9. B COMPLEX [Concomitant]
  10. MULTIVITAMIN [Concomitant]
  11. PEPCID [Concomitant]
  12. NORVASC [Concomitant]
  13. ALBUTEROL NEBULIZER [Concomitant]

REACTIONS (3)
  - Asthma [Recovering/Resolving]
  - Hypersensitivity [Recovering/Resolving]
  - Malaise [Recovering/Resolving]
